FAERS Safety Report 7592385-2 (Version None)
Quarter: 2011Q3

REPORT INFORMATION
  Report Type: 
  Country: None (occurrence: None)
  Receive Date: 20110705
  Receipt Date: 20110705
  Transmission Date: 20111222
  Serious: Yes (Life-Threatening, Hospitalization)
  Sender: FDA-Public Use
  Company Number: None

PATIENT
  Sex: Male
  Weight: 66.6788 kg

DRUGS (1)
  1. ZYTIGA [Suspect]
     Indication: PROSTATE CANCER METASTATIC
     Dosage: 1000MG QD PO
     Route: 048
     Dates: start: 20110503, end: 20110629

REACTIONS (3)
  - ANAEMIA [None]
  - HAEMORRHAGIC STROKE [None]
  - SUBDURAL HAEMATOMA [None]
